FAERS Safety Report 8361248-7 (Version None)
Quarter: 2012Q2

REPORT INFORMATION
  Report Type: 
  Country: None (occurrence: None)
  Receive Date: 20120515
  Receipt Date: 20110801
  Transmission Date: 20120825
  Serious: No
  Sender: FDA-Public Use
  Company Number: US-ALEXION-A201101169

PATIENT
  Sex: Female

DRUGS (8)
  1. IRON [Concomitant]
     Dosage: UNK
  2. VITAMIN D [Concomitant]
     Dosage: UNK
  3. PREDNISONE TAB [Concomitant]
     Dosage: 5 MG QD
     Dates: start: 20101209
  4. ASPIRIN [Concomitant]
     Dosage: 81 MG UNK
  5. SOLIRIS [Suspect]
     Indication: PAROXYSMAL NOCTURNAL HAEMOGLOBINURIA
     Dosage: 900 MG Q2W
     Route: 042
     Dates: start: 20110103
  6. SODIUM BICARBONATE [Concomitant]
     Indication: PROPHYLAXIS
     Dosage: UNK BID
     Route: 045
  7. ENALAPRIL MALEATE [Concomitant]
     Dosage: UNK
  8. ZYRTEC [Concomitant]
     Dosage: UNK
     Dates: start: 20110517, end: 20110729

REACTIONS (7)
  - STICKY SKIN [None]
  - RHINORRHOEA [None]
  - HYPERHIDROSIS [None]
  - ORAL DISCOMFORT [None]
  - GASTROINTESTINAL SOUNDS ABNORMAL [None]
  - SINUSITIS [None]
  - FEELING HOT [None]
